FAERS Safety Report 14070424 (Version 1)
Quarter: 2017Q4

REPORT INFORMATION
  Report Type: Report from Study
  Country: US (occurrence: US)
  Receive Date: 20171010
  Receipt Date: 20171010
  Transmission Date: 20180321
  Serious: No
  Sender: FDA-Public Use
  Company Number: PHEH2017US032618

PATIENT
  Age: 65 Year
  Sex: Male
  Weight: 68 kg

DRUGS (2)
  1. GLATOPA [Suspect]
     Active Substance: GLATIRAMER ACETATE
     Dosage: 20 MG, QD (ROTATING INJECTION SITE, THIGHS, BELLY)
     Route: 058
     Dates: start: 20171003
  2. GLATOPA [Suspect]
     Active Substance: GLATIRAMER ACETATE
     Indication: MULTIPLE SCLEROSIS
     Dosage: 20 MG, QD (ROTATING INJECTION SITE, THIGHS, BELLY)
     Route: 058
     Dates: start: 20170927

REACTIONS (8)
  - Injection site erythema [Unknown]
  - Tremor [Unknown]
  - Injection site pain [Unknown]
  - Chills [Unknown]
  - Muscle spasms [Unknown]
  - Injection site pruritus [Unknown]
  - Nasopharyngitis [Unknown]
  - Injection site mass [Unknown]

NARRATIVE: CASE EVENT DATE: 20171003
